FAERS Safety Report 16403380 (Version 9)
Quarter: 2021Q4

REPORT INFORMATION
  Report Type: Report from Study
  Country: CA (occurrence: CA)
  Receive Date: 20190607
  Receipt Date: 20211124
  Transmission Date: 20220303
  Serious: Yes (Hospitalization, Other)
  Sender: FDA-Public Use
  Company Number: PHHY2017CA138216

PATIENT
  Age: 68 Year
  Sex: Female
  Weight: 69.4 kg

DRUGS (6)
  1. COSENTYX [Suspect]
     Active Substance: SECUKINUMAB
     Indication: Psoriasis
     Dosage: 300 MG, UNK
     Route: 058
     Dates: start: 20170609, end: 20170907
  2. COSENTYX [Suspect]
     Active Substance: SECUKINUMAB
     Dosage: 300 MG, UNK
     Route: 058
     Dates: start: 20171107, end: 20201119
  3. BETAMETHASONE\CALCIPOTRIENE [Concomitant]
     Active Substance: BETAMETHASONE\CALCIPOTRIENE
     Indication: Psoriasis
     Dosage: UNK
     Route: 065
     Dates: start: 20160704
  4. ASPIRIN [Concomitant]
     Active Substance: ASPIRIN
     Indication: Cardiovascular event prophylaxis
     Dosage: 81 MG, QD
     Route: 065
     Dates: start: 2008
  5. CIPROFLOXACIN HYDROCHLORIDE [Concomitant]
     Active Substance: CIPROFLOXACIN HYDROCHLORIDE
     Indication: Depression
     Dosage: 10 MG, QD
     Route: 065
     Dates: start: 201705
  6. ATORVASTATIN [Concomitant]
     Active Substance: ATORVASTATIN
     Indication: Hyperlipidaemia
     Dosage: 10 MG, QD
     Route: 065
     Dates: start: 2008

REACTIONS (10)
  - Myocardial ischaemia [Recovered/Resolved]
  - Chest pain [Recovered/Resolved with Sequelae]
  - Lyme disease [Recovered/Resolved]
  - Interstitial lung disease [Unknown]
  - Hypersensitivity pneumonitis [Recovering/Resolving]
  - Dyspnoea [Not Recovered/Not Resolved]
  - Vasospasm [Unknown]
  - Depression [Recovered/Resolved]
  - Hypertension [Recovered/Resolved]
  - Actinic keratosis [Recovered/Resolved]

NARRATIVE: CASE EVENT DATE: 20170615
